FAERS Safety Report 7943488-1 (Version None)
Quarter: 2011Q4

REPORT INFORMATION
  Report Type: 
  Country: None (occurrence: None)
  Receive Date: 20111128
  Receipt Date: 20111116
  Transmission Date: 20120403
  Serious: Yes (Hospitalization)
  Sender: FDA-Public Use
  Company Number: PHHY2011DE099770

PATIENT
  Age: 11 Year
  Sex: Male

DRUGS (8)
  1. SANDIMMUNE [Suspect]
     Dosage: 120 MG TWICE DAILY
     Route: 048
     Dates: start: 20111116
  2. ACETYLSALICYLIC ACID SRT [Concomitant]
     Route: 048
  3. CORTISONE ACETATE [Concomitant]
     Indication: KIDNEY TRANSPLANT REJECTION
     Route: 048
  4. SANDIMMUNE [Suspect]
     Indication: PROPHYLAXIS AGAINST TRANSPLANT REJECTION
     Dosage: 130 MG TWICE DAILY
     Route: 048
     Dates: end: 20111012
  5. SANDIMMUNE [Suspect]
     Dosage: 100 MG TWICE DAILY
     Route: 048
     Dates: start: 20111013, end: 20111101
  6. SANDIMMUNE [Suspect]
     Dosage: 110 MG TWICE DAILY
     Route: 048
     Dates: start: 20111102, end: 20111115
  7. AMLODIPINE [Concomitant]
     Indication: HYPERTENSION
     Dosage: 1/2-0-1/2
     Route: 048
  8. MYCOPHENOLATE MOFETIL (CELLCEPT) [Concomitant]
     Indication: KIDNEY TRANSPLANT REJECTION
     Route: 048

REACTIONS (8)
  - EYE OEDEMA [None]
  - BENIGN INTRACRANIAL HYPERTENSION [None]
  - VISUAL ACUITY REDUCED [None]
  - INTRACRANIAL PRESSURE INCREASED [None]
  - BLOOD PRESSURE ABNORMAL [None]
  - INTRAOCULAR PRESSURE INCREASED [None]
  - VISUAL IMPAIRMENT [None]
  - EYE HAEMORRHAGE [None]
